FAERS Safety Report 8823695 (Version 1)
Quarter: 2012Q4

REPORT INFORMATION
  Report Type: 
  Country: FR (occurrence: FR)
  Receive Date: 20121003
  Receipt Date: 20121003
  Transmission Date: 20130627
  Serious: Yes (Hospitalization, Other)
  Sender: FDA-Public Use
  Company Number: FR-PFIZER INC-2012240358

PATIENT
  Age: 77 Year
  Sex: Male

DRUGS (9)
  1. TRIATEC [Suspect]
     Dosage: 5 mg, daily
     Route: 048
     Dates: start: 201104
  2. ALDACTONE [Suspect]
     Dosage: 50 mg, daily
     Route: 048
     Dates: start: 201104
  3. LASILIX [Suspect]
     Dosage: 250 mg, daily
     Route: 048
     Dates: start: 201104
  4. CARDENSIEL [Concomitant]
     Dosage: UNK
  5. CRESTOR [Concomitant]
     Dosage: UNK
  6. ASPEGIC [Concomitant]
     Dosage: UNK
  7. ZYLORIC [Concomitant]
     Dosage: UNK
  8. PREVISCAN [Concomitant]
     Dosage: UNK
  9. DIFFU K [Concomitant]
     Dosage: UNK
     Dates: start: 201104

REACTIONS (6)
  - Renal failure acute [Recovering/Resolving]
  - Hyperkalaemia [Recovered/Resolved]
  - Prostatitis [Unknown]
  - International normalised ratio increased [Unknown]
  - Blood albumin increased [Unknown]
  - Glycosylated haemoglobin increased [Unknown]
